FAERS Safety Report 23987938 (Version 2)
Quarter: 2024Q2

REPORT INFORMATION
  Report Type: Spontaneous
  Country: JP (occurrence: JP)
  Receive Date: 20240619
  Receipt Date: 20240626
  Transmission Date: 20240716
  Serious: Yes (Hospitalization, Other)
  Sender: FDA-Public Use
  Company Number: JP-JPNKAYAKU-2024JPNK039585

PATIENT

DRUGS (5)
  1. BEVACIZUMAB [Suspect]
     Active Substance: BEVACIZUMAB
     Indication: Breast cancer recurrent
     Dosage: 10MG/KG, 2COURSES (WITH A ROUTINE CYCLE OF 3 DOSES FOLLOWED BY 1 REST PERIOD WAS INITIATED WHILE CON
     Route: 042
  2. PACLITAXEL [Suspect]
     Active Substance: PACLITAXEL
     Indication: Breast cancer recurrent
     Dosage: 90MG/M2, 2COURSES (WITH A ROUTINE CYCLE OF 3 DOSES FOLLOWED BY 1 REST PERIOD WAS INITIATED WHILE CON
     Route: 042
  3. PACLITAXEL [Concomitant]
     Active Substance: PACLITAXEL
  4. MEROPENEM [Concomitant]
     Active Substance: MEROPENEM
  5. VANCOMYCIN [Concomitant]
     Active Substance: VANCOMYCIN

REACTIONS (2)
  - Peritonitis [Recovering/Resolving]
  - Cardiac failure congestive [Recovering/Resolving]
